FAERS Safety Report 5224379-6 (Version None)
Quarter: 2007Q1

REPORT INFORMATION
  Report Type: 
  Country: None (occurrence: None)
  Receive Date: 20070130
  Receipt Date: 20070102
  Transmission Date: 20070707
  Serious: Yes (Hospitalization, Other)
  Sender: FDA-Public Use
  Company Number: US-PFIZER INC-2005153173

PATIENT
  Sex: Male
  Weight: 83 kg

DRUGS (3)
  1. BEXTRA [Suspect]
     Indication: BACK PAIN
     Route: 048
     Dates: start: 20021029, end: 20050301
  2. BEXTRA [Suspect]
     Indication: INTERVERTEBRAL DISC DEGENERATION
  3. BEXTRA [Suspect]
     Indication: ARTHRITIS

REACTIONS (6)
  - ACUTE MYOCARDIAL INFARCTION [None]
  - CARDIAC ARREST [None]
  - CARDIAC FAILURE [None]
  - GASTROOESOPHAGEAL REFLUX DISEASE [None]
  - HYPOXIA [None]
  - PNEUMONIA ASPIRATION [None]
